FAERS Safety Report 10554863 (Version 2)
Quarter: 2014Q4

REPORT INFORMATION
  Report Type: Spontaneous
  Country: FR (occurrence: FR)
  Receive Date: 20141030
  Receipt Date: 20141121
  Transmission Date: 20150529
  Serious: Yes (Hospitalization)
  Sender: FDA-Public Use
  Company Number: FR-PFIZER INC-2014297331

PATIENT
  Age: 21 Year
  Sex: Male

DRUGS (4)
  1. SOLUPRED [Suspect]
     Active Substance: PREDNISOLONE
     Indication: DYSPHAGIA
     Dosage: UNK
     Route: 048
     Dates: start: 20020226, end: 20020227
  2. EXOMUC [Suspect]
     Active Substance: ACETYLCYSTEINE
     Indication: DYSPHAGIA
     Dosage: UNK
     Route: 048
     Dates: start: 20020221, end: 20020226
  3. ORELOX [Suspect]
     Active Substance: CEFPODOXIME
     Indication: DYSPHAGIA
     Dosage: UNK
     Route: 048
     Dates: start: 20020221, end: 20020225
  4. DOLIPRANE [Suspect]
     Active Substance: ACETAMINOPHEN
     Indication: PYREXIA
     Dosage: UNK
     Route: 048
     Dates: start: 20020221

REACTIONS (7)
  - Conjunctivitis [Recovered/Resolved]
  - Stevens-Johnson syndrome [Recovered/Resolved]
  - Bronchitis [Recovered/Resolved]
  - Pyrexia [Recovered/Resolved]
  - Oral mucosa erosion [Recovered/Resolved]
  - Oral disorder [Recovered/Resolved]
  - Cough [Recovered/Resolved]

NARRATIVE: CASE EVENT DATE: 20020226
